FAERS Safety Report 4426478-5 (Version None)
Quarter: 2004Q3

REPORT INFORMATION
  Report Type: 
  Country: None (occurrence: None)
  Receive Date: 20040816
  Receipt Date: 20040804
  Transmission Date: 20050211
  Serious: Yes (Death, Hospitalization, Other)
  Sender: FDA-Public Use
  Company Number: JP-JNJFOC-20040402644

PATIENT
  Sex: Female
  Weight: 38 kg

DRUGS (19)
  1. REMICADE [Suspect]
     Route: 041
     Dates: start: 20040315
  2. REMICADE [Suspect]
     Indication: RHEUMATOID ARTHRITIS
     Route: 041
     Dates: start: 20040315
  3. PREDNISOLONE [Suspect]
     Route: 065
     Dates: start: 20040114
  4. PREDNISOLONE [Suspect]
     Route: 065
     Dates: start: 20040114
  5. PREDNISOLONE [Suspect]
     Route: 065
     Dates: start: 20040114
  6. PREDNISOLONE [Suspect]
     Route: 065
     Dates: start: 20040114
  7. PREDNISOLONE [Suspect]
     Indication: RHEUMATOID ARTHRITIS
     Route: 065
     Dates: start: 20040114
  8. METHOTREXATE [Concomitant]
     Route: 049
  9. RHEUMATREX [Concomitant]
     Route: 065
     Dates: start: 20040202
  10. RHEUMATREX [Concomitant]
     Route: 065
     Dates: start: 20040202
  11. RHEUMATREX [Concomitant]
     Indication: RHEUMATOID ARTHRITIS
     Route: 065
     Dates: start: 20040202
  12. LORCAM [Concomitant]
     Indication: RHEUMATOID ARTHRITIS
     Route: 065
     Dates: start: 20040212
  13. FOLIAMIN [Concomitant]
     Route: 065
     Dates: start: 20040205
  14. PLATIVIT [Concomitant]
     Route: 065
     Dates: start: 20040114
  15. SELBEX [Concomitant]
     Route: 065
     Dates: start: 20040114
  16. FERROMIA [Concomitant]
     Route: 065
     Dates: start: 20040114
  17. PRONON [Concomitant]
     Route: 065
     Dates: start: 20040114
  18. LASIX [Concomitant]
     Route: 065
     Dates: start: 20040114
  19. SOLERUMON SR [Concomitant]
     Indication: RHEUMATOID ARTHRITIS
     Route: 049

REACTIONS (12)
  - CELLULITIS [None]
  - DEAFNESS NEUROSENSORY [None]
  - DECREASED APPETITE [None]
  - DRUG INTERACTION [None]
  - DYSPHAGIA [None]
  - PRODUCTIVE COUGH [None]
  - PYREXIA [None]
  - SHOCK [None]
  - SPEECH DISORDER [None]
  - STAPHYLOCOCCAL INFECTION [None]
  - VOMITING [None]
  - WHITE BLOOD CELL COUNT DECREASED [None]
